FAERS Safety Report 9742803 (Version 1)
Quarter: 2013Q4

REPORT INFORMATION
  Report Type: Spontaneous
  Country: AT (occurrence: AT)
  Receive Date: 20131210
  Receipt Date: 20131210
  Transmission Date: 20140711
  Serious: Yes (Life-Threatening)
  Sender: FDA-Public Use
  Company Number: AT-JNJFOC-20131204198

PATIENT
  Age: 83 Year
  Sex: Female

DRUGS (10)
  1. XARELTO [Suspect]
     Indication: PROPHYLAXIS
     Route: 048
     Dates: start: 201309, end: 20131118
  2. TAZONAM [Concomitant]
     Route: 065
     Dates: start: 20131115
  3. LASIX [Concomitant]
     Route: 065
     Dates: start: 20131116
  4. HALCION [Concomitant]
     Route: 065
  5. YOMOGI [Concomitant]
     Route: 065
  6. PANTOLOC [Concomitant]
     Route: 065
  7. DICLOBENE [Concomitant]
     Indication: PAIN
     Route: 065
  8. AEROMUC [Concomitant]
     Route: 065
  9. DALACIN [Concomitant]
     Route: 065
     Dates: start: 20131115
  10. NOVALGIN [Concomitant]
     Route: 065
     Dates: start: 20131118

REACTIONS (2)
  - Pulmonary embolism [Not Recovered/Not Resolved]
  - Drug ineffective [Not Recovered/Not Resolved]
